FAERS Safety Report 7591089-X (Version None)
Quarter: 2011Q3

REPORT INFORMATION
  Report Type: 
  Country: None (occurrence: None)
  Receive Date: 20110705
  Receipt Date: 20110617
  Transmission Date: 20111222
  Serious: Yes (Hospitalization)
  Sender: FDA-Public Use
  Company Number: US-GENENTECH-320635

PATIENT
  Sex: Female

DRUGS (2)
  1. VFEND [Concomitant]
     Indication: PRODUCT USED FOR UNKNOWN INDICATION
  2. XOLAIR [Suspect]
     Indication: PRODUCT USED FOR UNKNOWN INDICATION
     Route: 058

REACTIONS (3)
  - BRONCHOPULMONARY ASPERGILLOSIS ALLERGIC [None]
  - PSYCHOTIC DISORDER [None]
  - PNEUMONIA [None]
